FAERS Safety Report 9117425 (Version 1)
Quarter: 2013Q1

REPORT INFORMATION
  Report Type: Report from Study
  Country: US (occurrence: US)
  Receive Date: 20130129
  Receipt Date: 20130129
  Transmission Date: 20140127
  Serious: No
  Sender: FDA-Public Use
  Company Number: US-ABBOTT-12P-163-0943959-00

PATIENT
  Age: 41 Year
  Sex: Female

DRUGS (16)
  1. HUMIRA 40 MG/0.8 ML PEN [Suspect]
     Indication: RHEUMATOID ARTHRITIS
     Dates: start: 20120524
  2. PREDNISONE [Concomitant]
     Indication: PRODUCT USED FOR UNKNOWN INDICATION
     Dosage: DAILY
  3. EFFEXOR [Concomitant]
     Indication: ANXIETY
     Dates: start: 20120514
  4. EFFEXOR [Concomitant]
     Indication: DEPRESSION
  5. EFFEXOR [Concomitant]
     Indication: NERVOUSNESS
  6. OMEPRAZOLE [Concomitant]
     Indication: PRODUCT USED FOR UNKNOWN INDICATION
  7. METOPROLOL [Concomitant]
     Indication: BLOOD PRESSURE
  8. LISINOPRIL [Concomitant]
     Indication: PRODUCT USED FOR UNKNOWN INDICATION
  9. PRAVASTATIN [Concomitant]
     Indication: PRODUCT USED FOR UNKNOWN INDICATION
     Dosage: 40MG DAILY AT BEDTIME
  10. BUSPIRONE [Concomitant]
     Indication: ANXIETY
     Dosage: 15MG-0.5 PILL TWICE A DAY
  11. DICLOFENAC [Concomitant]
     Indication: RHEUMATOID ARTHRITIS
  12. KLONOPIN [Concomitant]
     Indication: NERVOUSNESS
     Dosage: TWICE DAILY AS NEEDED
  13. LYRICA [Concomitant]
     Indication: RESTLESS LEGS SYNDROME
     Dosage: 3 TIMES PER DAY
  14. GABAPENTIN [Concomitant]
     Indication: RESTLESS LEGS SYNDROME
  15. HYDROCODONE/ACETAMINOPHEN [Concomitant]
     Indication: MUSCULOSKELETAL STIFFNESS
     Dosage: 7.5/5-3 TIMES DAILY AS NEEDED
  16. HYDROCODONE/ACETAMINOPHEN [Concomitant]
     Indication: MUSCULOSKELETAL PAIN

REACTIONS (2)
  - Incorrect dose administered [Unknown]
  - Dysuria [Not Recovered/Not Resolved]
